FAERS Safety Report 6155058-9 (Version None)
Quarter: 2009Q2

REPORT INFORMATION
  Report Type: 
  Country: None (occurrence: None)
  Receive Date: 20090414
  Receipt Date: 20090330
  Transmission Date: 20091009
  Serious: Yes (Other)
  Sender: FDA-Public Use
  Company Number: BE-GENENTECH-280960

PATIENT

DRUGS (30)
  1. MABTHERA [Suspect]
     Indication: HAEMATOLOGICAL MALIGNANCY
     Route: 065
  2. ASPARAGINASE [Suspect]
     Indication: HAEMATOLOGICAL MALIGNANCY
     Route: 065
  3. BLEOMYCIN [Suspect]
     Indication: HAEMATOLOGICAL MALIGNANCY
     Route: 065
  4. METHOTREXATE [Suspect]
     Indication: HAEMATOLOGICAL MALIGNANCY
     Route: 065
  5. LEUCOVORIN CALCIUM [Suspect]
     Indication: HAEMATOLOGICAL MALIGNANCY
     Route: 065
  6. THALIDOMIDE [Suspect]
     Indication: HAEMATOLOGICAL MALIGNANCY
     Route: 065
  7. BORTEZOMIB [Suspect]
     Indication: HAEMATOLOGICAL MALIGNANCY
     Route: 065
  8. VINCRISTINE [Suspect]
     Indication: HAEMATOLOGICAL MALIGNANCY
     Route: 065
  9. FLUOROURACIL [Suspect]
     Indication: HAEMATOLOGICAL MALIGNANCY
     Route: 065
  10. CISPLATIN [Suspect]
     Indication: HAEMATOLOGICAL MALIGNANCY
     Route: 065
  11. GEMCITABINE HCL [Suspect]
     Indication: HAEMATOLOGICAL MALIGNANCY
     Route: 065
  12. VINDESINE [Suspect]
     Indication: HAEMATOLOGICAL MALIGNANCY
     Route: 065
  13. DACARBAZINE [Suspect]
     Indication: HAEMATOLOGICAL MALIGNANCY
     Route: 065
  14. FLUDARABINE PHOSPHATE [Suspect]
     Indication: HAEMATOLOGICAL MALIGNANCY
     Route: 065
  15. MELPHALAN [Suspect]
     Indication: HAEMATOLOGICAL MALIGNANCY
     Route: 065
  16. PURINETHOL [Suspect]
     Indication: HAEMATOLOGICAL MALIGNANCY
     Route: 065
  17. PROCARBAZINE [Suspect]
     Indication: HAEMATOLOGICAL MALIGNANCY
     Route: 065
  18. VINBLASTINE SULFATE [Suspect]
     Indication: HAEMATOLOGICAL MALIGNANCY
     Route: 065
  19. ADRIAMYCIN RDF [Suspect]
     Indication: HAEMATOLOGICAL MALIGNANCY
     Route: 065
  20. AMSACRINE [Suspect]
     Indication: HAEMATOLOGICAL MALIGNANCY
     Route: 065
  21. CARBOPLATIN [Suspect]
     Indication: HAEMATOLOGICAL MALIGNANCY
     Route: 065
  22. CYCLOPHOSPHAMIDE [Suspect]
     Indication: HAEMATOLOGICAL MALIGNANCY
     Route: 065
  23. CYTARABINE [Suspect]
     Indication: HAEMATOLOGICAL MALIGNANCY
     Route: 065
  24. DAUNORUBICIN HCL [Suspect]
     Indication: HAEMATOLOGICAL MALIGNANCY
     Route: 065
  25. ETOPOSIDE [Suspect]
     Indication: HAEMATOLOGICAL MALIGNANCY
     Route: 065
  26. IFOSFAMIDE [Suspect]
     Indication: HAEMATOLOGICAL MALIGNANCY
     Route: 065
  27. TENIPOSIDE [Suspect]
     Indication: HAEMATOLOGICAL MALIGNANCY
     Route: 065
  28. BUSULFAN [Suspect]
     Indication: HAEMATOLOGICAL MALIGNANCY
     Route: 065
  29. CARMUSTINE [Suspect]
     Indication: HAEMATOLOGICAL MALIGNANCY
     Route: 065
  30. IDARUBICIN HCL [Suspect]
     Indication: HAEMATOLOGICAL MALIGNANCY
     Route: 065

REACTIONS (1)
  - FEBRILE NEUTROPENIA [None]
